FAERS Safety Report 7493747-4 (Version None)
Quarter: 2011Q2

REPORT INFORMATION
  Report Type: 
  Country: None (occurrence: None)
  Receive Date: 20110520
  Receipt Date: 20110511
  Transmission Date: 20111010
  Serious: Yes (Other)
  Sender: FDA-Public Use
  Company Number: MX-SANOFI-AVENTIS-2010SA070805

PATIENT
  Age: 56 Year
  Sex: Female
  Weight: 170 kg

DRUGS (8)
  1. GLYBURIDE [Concomitant]
     Indication: TYPE 2 DIABETES MELLITUS
     Route: 048
     Dates: start: 20080101
  2. CAPTOPRIL [Concomitant]
     Route: 048
     Dates: start: 19810101
  3. SOLOSTAR [Suspect]
     Dates: start: 20101119
  4. METFORMIN HCL [Suspect]
     Indication: TYPE 2 DIABETES MELLITUS
     Route: 048
     Dates: start: 20080101
  5. APIDRA SOLOSTAR [Suspect]
     Indication: TYPE 2 DIABETES MELLITUS
     Route: 058
     Dates: start: 20101108, end: 20101118
  6. CARBAMAZEPINE [Concomitant]
     Indication: DIABETIC NEUROPATHY
     Route: 048
     Dates: start: 20070101
  7. SOLOSTAR [Suspect]
     Dates: start: 20101108, end: 20101118
  8. LANTUS [Suspect]
     Indication: TYPE 2 DIABETES MELLITUS
     Route: 058
     Dates: start: 20101119

REACTIONS (1)
  - WRONG DRUG ADMINISTERED [None]
